FAERS Safety Report 9306905 (Version 2)
Quarter: 2013Q3

REPORT INFORMATION
  Report Type: Spontaneous
  Country: FR (occurrence: FR)
  Receive Date: 20130523
  Receipt Date: 20130701
  Transmission Date: 20140515
  Serious: Yes (Other)
  Sender: FDA-Public Use
  Company Number: FR-GILEAD-2013-0075359

PATIENT
  Age: 40 Year
  Sex: Female

DRUGS (6)
  1. VIREAD [Suspect]
     Indication: HIV INFECTION
     Dosage: UNK
     Dates: start: 20110121
  2. VIREAD [Suspect]
     Dosage: UNK
     Dates: start: 20110320
  3. NEVIRAPINE [Concomitant]
     Indication: HIV INFECTION
     Dosage: UNK
     Dates: start: 20110121
  4. EMTRICITABINE [Concomitant]
     Indication: HIV INFECTION
     Dosage: UNK
     Dates: start: 20110121
  5. LAMIVUDINE [Concomitant]
     Indication: HIV INFECTION
     Dosage: UNK
     Dates: start: 20110320
  6. EFAVIRENZ [Concomitant]
     Indication: HIV INFECTION
     Dosage: UNK
     Dates: start: 20110320

REACTIONS (1)
  - Drug reaction with eosinophilia and systemic symptoms [Recovered/Resolved]
